FAERS Safety Report 10668234 (Version 1)
Quarter: 2014Q4

REPORT INFORMATION
  Report Type: Spontaneous
  Country: US (occurrence: US)
  Receive Date: 20141222
  Receipt Date: 20141222
  Transmission Date: 20150529
  Serious: No
  Sender: FDA-Public Use
  Company Number: US-GLAXOSMITHKLINE-A1077894A

PATIENT

DRUGS (1)
  1. AVODART [Suspect]
     Active Substance: DUTASTERIDE
     Indication: BENIGN PROSTATIC HYPERPLASIA
     Dosage: UNKNOWN DOSING
     Route: 065
     Dates: start: 20100306, end: 20110715

REACTIONS (2)
  - Adverse drug reaction [Not Recovered/Not Resolved]
  - Injury [Not Recovered/Not Resolved]
